FAERS Safety Report 18316440 (Version 2)
Quarter: 2020Q4

REPORT INFORMATION
  Report Type: Spontaneous
  Country: US (occurrence: US)
  Receive Date: 20200927
  Receipt Date: 20201027
  Transmission Date: 20210113
  Serious: No
  Sender: FDA-Public Use
  Company Number: US-ASTRAZENECA-2020SF21366

PATIENT
  Sex: Female
  Weight: 72.6 kg

DRUGS (19)
  1. NITROFUR MAC [Concomitant]
     Active Substance: NITROFURANTOIN
     Dosage: 100.0MG UNKNOWN
  2. METFORMIN [Concomitant]
     Active Substance: METFORMIN HYDROCHLORIDE
  3. ALLOPURINOL. [Concomitant]
     Active Substance: ALLOPURINOL
     Indication: GOUT
     Dosage: 300.0MG UNKNOWN
  4. DONEPEZIL. [Concomitant]
     Active Substance: DONEPEZIL
  5. NORTRIPTYLINE [Concomitant]
     Active Substance: NORTRIPTYLINE
  6. ESCITALOPRAM [Concomitant]
     Active Substance: ESCITALOPRAM OXALATE
     Indication: DEPRESSION
     Dosage: 20.0MG UNKNOWN
  7. PREGABALIN. [Concomitant]
     Active Substance: PREGABALIN
  8. FUROSEMIDE. [Concomitant]
     Active Substance: FUROSEMIDE
     Dosage: 40.0MG UNKNOWN
  9. SIMVASTATIN. [Concomitant]
     Active Substance: SIMVASTATIN
  10. OMEPRAZOLE. [Suspect]
     Active Substance: OMEPRAZOLE
     Dosage: 20.0MG UNKNOWN
     Route: 048
  11. FENOFIBRATE. [Concomitant]
     Active Substance: FENOFIBRATE
     Dosage: 145.0MG UNKNOWN
  12. BYDUREON [Suspect]
     Active Substance: EXENATIDE
     Indication: DIABETES MELLITUS
     Route: 058
  13. CLOPIDOGREL [Concomitant]
     Active Substance: CLOPIDOGREL BISULFATE
     Dosage: 75.0MG UNKNOWN
  14. EZETIMIBE. [Concomitant]
     Active Substance: EZETIMIBE
     Dosage: 10.0MG UNKNOWN
  15. MUPIROCIN. [Concomitant]
     Active Substance: MUPIROCIN
  16. RISEDRONATE [Concomitant]
     Active Substance: RISEDRONATE SODIUM
  17. BYDUREON BCISE [Suspect]
     Active Substance: EXENATIDE
     Indication: DIABETES MELLITUS
     Dosage: ONCE EVERY OTHER MONDAY (ONCE EVERY 2 WEEKS)
     Route: 058
  18. PROBENECID. [Concomitant]
     Active Substance: PROBENECID
     Dosage: 500.0MG UNKNOWN
  19. BUPLOPIO [Concomitant]

REACTIONS (7)
  - Device issue [Unknown]
  - Body height decreased [Unknown]
  - Inability to afford medication [Unknown]
  - Device use issue [Unknown]
  - Off label use [Unknown]
  - Wrong technique in device usage process [Unknown]
  - Device malfunction [Unknown]
